FAERS Safety Report 6359435-2 (Version None)
Quarter: 2009Q3

REPORT INFORMATION
  Report Type: 
  Country: None (occurrence: None)
  Receive Date: 20090917
  Receipt Date: 20090908
  Transmission Date: 20100115
  Serious: Yes (Other)
  Sender: FDA-Public Use
  Company Number: US-PFIZER INC-2005039361

PATIENT
  Sex: Female

DRUGS (10)
  1. PROVERA [Suspect]
     Indication: HORMONE REPLACEMENT THERAPY
     Dosage: UNK
     Route: 048
     Dates: start: 19840701
  2. OGEN [Suspect]
     Indication: HORMONE REPLACEMENT THERAPY
     Dosage: UNK
     Route: 065
     Dates: start: 20000504, end: 20020212
  3. MEDROXYPROGESTERONE AND MEDROXYPROGESTERONE ACETATE [Suspect]
     Indication: HORMONE REPLACEMENT THERAPY
     Dosage: UNK
     Route: 065
     Dates: start: 20000504, end: 20020212
  4. PREMARIN [Suspect]
     Indication: HORMONE REPLACEMENT THERAPY
     Dosage: UNK
     Route: 065
     Dates: start: 19840101, end: 19990701
  5. PREMPRO [Suspect]
     Indication: HORMONE REPLACEMENT THERAPY
     Dosage: UNK
     Route: 065
     Dates: start: 19990611, end: 20000504
  6. PACERONE [Concomitant]
     Indication: ARRHYTHMIA
     Dosage: UNK
     Dates: start: 19990101
  7. FUROSEMIDE [Concomitant]
     Indication: POLYURIA
     Dosage: UNK
  8. ZOLOFT [Concomitant]
     Indication: NEUROPATHY PERIPHERAL
     Dosage: UNK
  9. GEMFIBROZIL [Concomitant]
     Indication: BLOOD TRIGLYCERIDES
     Dosage: UNK
  10. POTASSIUM [Concomitant]
     Indication: SUPPLEMENTATION THERAPY
     Dosage: UNK

REACTIONS (1)
  - BREAST CANCER FEMALE [None]
